FAERS Safety Report 15423211 (Version 1)
Quarter: 2018Q3

REPORT INFORMATION
  Report Type: Report from Study
  Country: IT (occurrence: IT)
  Receive Date: 20180925
  Receipt Date: 20180925
  Transmission Date: 20181010
  Serious: Yes (Hospitalization)
  Sender: FDA-Public Use
  Company Number: IT-PURDUE-GBR-2018-0059467

PATIENT
  Age: 78 Year
  Sex: Female

DRUGS (5)
  1. TARGIN [Suspect]
     Active Substance: NALOXONE HYDROCHLORIDE\OXYCODONE HYDROCHLORIDE
     Indication: ANALGESIC THERAPY
     Dosage: STRENGTH 20MG/10MG
     Route: 048
  2. BACLOFEN. [Suspect]
     Active Substance: BACLOFEN
     Indication: HYPERTONIA
     Route: 048
  3. SERETIDE [Concomitant]
     Active Substance: FLUTICASONE PROPIONATE\SALMETEROL XINAFOATE
     Route: 055
  4. LYRICA [Concomitant]
     Active Substance: PREGABALIN
     Route: 048
  5. INDOXEN [Concomitant]
     Active Substance: INDOMETHACIN
     Route: 048

REACTIONS (2)
  - Poisoning [Recovered/Resolved]
  - Neurological symptom [Recovered/Resolved]

NARRATIVE: CASE EVENT DATE: 20170930
